FAERS Safety Report 7438935-8 (Version None)
Quarter: 2011Q2

REPORT INFORMATION
  Report Type: 
  Country: None (occurrence: None)
  Receive Date: 20110426
  Receipt Date: 20110415
  Transmission Date: 20111010
  Serious: Yes (Hospitalization)
  Sender: FDA-Public Use
  Company Number: FR-BAYER-2011-033748

PATIENT
  Age: 96 Year
  Sex: Male

DRUGS (1)
  1. CIFLOX [Suspect]
     Indication: URINARY TRACT INFECTION
     Dosage: 200 MG, BID
     Route: 048
     Dates: start: 20110315, end: 20110322

REACTIONS (5)
  - INSOMNIA [None]
  - AGGRESSION [None]
  - DISORIENTATION [None]
  - ANXIETY [None]
  - HALLUCINATION [None]
